FAERS Safety Report 7081520-0 (Version None)
Quarter: 2010Q4

REPORT INFORMATION
  Report Type: 
  Country: None (occurrence: None)
  Receive Date: 20101102
  Receipt Date: 20101102
  Transmission Date: 20110411
  Serious: Yes (Hospitalization)
  Sender: FDA-Public Use
  Company Number: None

PATIENT
  Age: 75 Year
  Sex: Male
  Weight: 94 kg

DRUGS (1)
  1. METRONIDAZOLE [Suspect]
     Indication: CLOSTRIDIUM DIFFICILE COLITIS
     Dosage: 500 MG TID PO
     Route: 048
     Dates: start: 20101014, end: 20101024

REACTIONS (1)
  - ANAPHYLACTIC REACTION [None]
